FAERS Safety Report 7600950-9 (Version None)
Quarter: 2011Q3

REPORT INFORMATION
  Report Type: 
  Country: None (occurrence: None)
  Receive Date: 20110701
  Receipt Date: 20110128
  Transmission Date: 20111222
  Serious: Yes (Hospitalization)
  Sender: FDA-Public Use
  Company Number: GXBR2010US02086

PATIENT
  Age: 11 Year
  Sex: Female
  Weight: 22.8 kg

DRUGS (2)
  1. VITAMIN D [Concomitant]
  2. OMNITROPE [Suspect]
     Indication: GROWTH HORMONE DEFICIENCY
     Dosage: 1 MG DAILY, SIX DAYS PER WEEK, INJECTION NOS
     Route: 042
     Dates: start: 20101023, end: 20101123

REACTIONS (3)
  - HEADACHE [None]
  - PAPILLOEDEMA [None]
  - INTRACRANIAL PRESSURE INCREASED [None]
